FAERS Safety Report 20613391 (Version 1)
Quarter: 2022Q1

REPORT INFORMATION
  Report Type: Spontaneous
  Country: US (occurrence: US)
  Receive Date: 20220319
  Receipt Date: 20220319
  Transmission Date: 20220423
  Serious: Yes (Death, Hospitalization, Other)
  Sender: FDA-Public Use
  Company Number: US-ALVOGEN-2022-ALVOGEN-119048

PATIENT
  Age: 55 Year
  Sex: Female

DRUGS (8)
  1. HYDROCODONE BITARTRATE AND ACETAMINOPHEN [Suspect]
     Active Substance: ACETAMINOPHEN\HYDROCODONE BITARTRATE
     Indication: Suicide attempt
  2. TRAZODONE [Suspect]
     Active Substance: TRAZODONE HYDROCHLORIDE
     Indication: Suicide attempt
  3. CLONIDINE [Suspect]
     Active Substance: CLONIDINE
     Indication: Suicide attempt
  4. QUETIAPINE [Suspect]
     Active Substance: QUETIAPINE
     Indication: Suicide attempt
  5. DULOXETINE [Suspect]
     Active Substance: DULOXETINE
     Indication: Suicide attempt
  6. PREGABALIN [Suspect]
     Active Substance: PREGABALIN
     Indication: Suicide attempt
  7. ZOLPIDEM [Suspect]
     Active Substance: ZOLPIDEM TARTRATE
     Indication: Suicide attempt
  8. DIAZEPAM [Suspect]
     Active Substance: DIAZEPAM
     Indication: Suicide attempt

REACTIONS (1)
  - Completed suicide [Fatal]
